FAERS Safety Report 6852081-3 (Version None)
Quarter: 2010Q3

REPORT INFORMATION
  Report Type: 
  Country: None (occurrence: None)
  Receive Date: 20100717
  Receipt Date: 20071106
  Transmission Date: 20110219
  Serious: No
  Sender: FDA-Public Use
  Company Number: US-PFIZER INC-2007094322

PATIENT
  Sex: Female

DRUGS (3)
  1. CHANTIX [Suspect]
  2. ANTIBIOTICS [Concomitant]
     Indication: BRONCHITIS
  3. PREDNISONE [Concomitant]
     Indication: BRONCHITIS

REACTIONS (1)
  - NAUSEA [None]
